FAERS Safety Report 6357345-8 (Version None)
Quarter: 2009Q3

REPORT INFORMATION
  Report Type: 
  Country: None (occurrence: None)
  Receive Date: 20090916
  Receipt Date: 20090902
  Transmission Date: 20100115
  Serious: Yes (Death, Hospitalization)
  Sender: FDA-Public Use
  Company Number: US-BIOGENIDEC-2009BI023059

PATIENT
  Sex: Female
  Weight: 45 kg

DRUGS (14)
  1. TYSABRI [Suspect]
     Indication: MULTIPLE SCLEROSIS
     Route: 042
     Dates: start: 20071001, end: 20090521
  2. PROVIGIL [Concomitant]
     Indication: DRUG USE FOR UNKNOWN INDICATION
     Route: 030
  3. SERTRALINE HCL [Concomitant]
     Indication: DRUG USE FOR UNKNOWN INDICATION
  4. LEVOXYL [Concomitant]
     Indication: HYPOTHYROIDISM
  5. DILANTIN [Concomitant]
  6. ENALAPRIL MALEATE [Concomitant]
  7. MECLIZINE [Concomitant]
  8. FOSAMAX [Concomitant]
  9. LASIX [Concomitant]
  10. FOLIC ACID [Concomitant]
  11. TRAZODONE [Concomitant]
  12. ASPIRIN [Concomitant]
     Indication: CEREBROVASCULAR ACCIDENT
     Route: 042
     Dates: start: 20090101
  13. ASPIRIN [Concomitant]
     Indication: VERTEBRAL ARTERY OCCLUSION
     Route: 042
     Dates: start: 20090101
  14. TIZANADINE [Concomitant]
     Indication: DRUG USE FOR UNKNOWN INDICATION

REACTIONS (13)
  - AORTIC VALVE INCOMPETENCE [None]
  - BRAIN CONTUSION [None]
  - CEREBRAL ISCHAEMIA [None]
  - CYSTITIS [None]
  - DEPRESSION [None]
  - ENDOCARDITIS [None]
  - FALL [None]
  - FATIGUE [None]
  - LUNG INFECTION PSEUDOMONAL [None]
  - MITRAL VALVE INCOMPETENCE [None]
  - PNEUMONIA [None]
  - SUBDURAL HAEMATOMA [None]
  - TRICUSPID VALVE INCOMPETENCE [None]
